FAERS Safety Report 7417098-9 (Version None)
Quarter: 2011Q2

REPORT INFORMATION
  Report Type: 
  Country: None (occurrence: None)
  Receive Date: 20110406
  Receipt Date: 20110321
  Transmission Date: 20111010
  Serious: Yes (Hospitalization)
  Sender: FDA-Public Use
  Company Number: 029651

PATIENT
  Sex: Female
  Weight: 57 kg

DRUGS (3)
  1. DEPAKENE [Suspect]
     Dosage: (500 MG QD ORAL)
     Route: 048
  2. KEPPRA [Suspect]
     Dosage: (1000 MG BID ORAL)
     Route: 048
     Dates: end: 20110315
  3. LACOSAMIDE [Suspect]
     Dosage: (100 MG  ORAL), (200 MG BID ORAL)
     Route: 048
     Dates: start: 20110315

REACTIONS (2)
  - STATUS EPILEPTICUS [None]
  - CLONUS [None]
